FAERS Safety Report 6076397-6 (Version None)
Quarter: 2009Q1

REPORT INFORMATION
  Report Type: 
  Country: None (occurrence: None)
  Receive Date: 20090209
  Receipt Date: 20090123
  Transmission Date: 20090719
  Serious: Yes (Hospitalization)
  Sender: FDA-Public Use
  Company Number: 000253

PATIENT
  Sex: Male

DRUGS (3)
  1. LACOSAMIDE [Suspect]
     Dosage: (50 MG BID)
  2. VALPROATE SODIUM [Concomitant]
  3. TOPIRAMATE [Concomitant]

REACTIONS (1)
  - PSYCHOTIC DISORDER [None]
